FAERS Safety Report 23845393 (Version 1)
Quarter: 2024Q2

REPORT INFORMATION
  Report Type: Other
  Country: US (occurrence: US)
  Receive Date: 20240511
  Receipt Date: 20240511
  Transmission Date: 20240716
  Serious: No
  Sender: FDA-Public Use
  Company Number: US-TRAVERE-2024TVT00358

PATIENT
  Sex: Male

DRUGS (10)
  1. FILSPARI [Suspect]
     Active Substance: SPARSENTAN
     Indication: IgA nephropathy
     Route: 048
     Dates: start: 202305
  2. METAMUCIL [Concomitant]
     Active Substance: PLANTAGO SEED
  3. COENZYME Q-10 [Concomitant]
  4. ATORVASTATIN CALCIUM [Concomitant]
     Active Substance: ATORVASTATIN CALCIUM
  5. ACTHAR [Concomitant]
     Active Substance: CORTICOTROPIN
  6. BENADRYL [Concomitant]
     Active Substance: DIPHENHYDRAMINE HYDROCHLORIDE
  7. FISH OIL [Concomitant]
     Active Substance: FISH OIL
  8. ALLOPURINOL [Concomitant]
     Active Substance: ALLOPURINOL
  9. FARXIGA [Concomitant]
     Active Substance: DAPAGLIFLOZIN PROPANEDIOL
  10. TAMSULOSIN HYDROCHLORIDE [Concomitant]
     Active Substance: TAMSULOSIN HYDROCHLORIDE

REACTIONS (1)
  - Gastrooesophageal reflux disease [Unknown]
